FAERS Safety Report 4747794-3 (Version None)
Quarter: 2005Q3

REPORT INFORMATION
  Report Type: 
  Country: None (occurrence: None)
  Receive Date: 20050816
  Receipt Date: 20040518
  Transmission Date: 20060218
  Serious: Yes (Hospitalization)
  Sender: FDA-Public Use
  Company Number: 02100-USA-02-0056

PATIENT
  Age: 82 Year
  Sex: Male

DRUGS (6)
  1. PLETAL [Suspect]
     Indication: INTERMITTENT CLAUDICATION
     Dosage: 100 MG BID ORAL
     Route: 048
     Dates: start: 20010924
  2. PLETAL [Suspect]
     Indication: INTERMITTENT CLAUDICATION
     Dosage: 100 MG HS ORAL
     Route: 048
     Dates: end: 20020319
  3. VITAMIN B COMPLEX CAP [Concomitant]
  4. ^BRAIN POWER^ [Concomitant]
  5. LEVOTHYROXINE [Concomitant]
  6. PROSTATA [Concomitant]

REACTIONS (8)
  - AMYLOIDOSIS [None]
  - ANOREXIA [None]
  - BUNDLE BRANCH BLOCK [None]
  - DIARRHOEA [None]
  - NAUSEA [None]
  - PNEUMONIA [None]
  - PROTEIN URINE PRESENT [None]
  - WEIGHT DECREASED [None]
